FAERS Safety Report 24745175 (Version 1)
Quarter: 2024Q4

REPORT INFORMATION
  Report Type: Spontaneous
  Country: US (occurrence: US)
  Receive Date: 20241217
  Receipt Date: 20241217
  Transmission Date: 20250114
  Serious: No
  Sender: ELI LILLY AND COMPANY
  Company Number: US-ELI_LILLY_AND_COMPANY-US202412010976

PATIENT
  Age: 36 Year
  Sex: Female

DRUGS (1)
  1. TALTZ [Suspect]
     Active Substance: IXEKIZUMAB
     Indication: Psoriasis
     Dosage: 160 MG, LOADING DOSE
     Route: 065
     Dates: start: 20241114

REACTIONS (2)
  - Injection site pain [Recovered/Resolved]
  - Injection site hypersensitivity [Recovered/Resolved]

NARRATIVE: CASE EVENT DATE: 20241114
